FAERS Safety Report 5082538-X (Version None)
Quarter: 2006Q3

REPORT INFORMATION
  Report Type: 
  Country: None (occurrence: None)
  Receive Date: 20060814
  Receipt Date: 20060802
  Transmission Date: 20061208
  Serious: No
  Sender: FDA-Public Use
  Company Number: 06H-163-0309532-00

PATIENT
  Age: 58 Year
  Sex: Male

DRUGS (2)
  1. MIDAZOLAM HCL [Suspect]
     Indication: ANAESTHESIA
     Dosage: 1 MG
  2. PROPOFOL [Suspect]
     Indication: ANAESTHESIA
     Dosage: 25 MCG/KG/MIN

REACTIONS (1)
  - DYSKINESIA [None]
